FAERS Safety Report 7457442-X (Version None)
Quarter: 2011Q2

REPORT INFORMATION
  Report Type: 
  Country: None (occurrence: None)
  Receive Date: 20110504
  Receipt Date: 20110421
  Transmission Date: 20111010
  Serious: No
  Sender: FDA-Public Use
  Company Number: US-B.I. PHARMACEUTICALS,INC./RIDGEFIELD-2011-BP-02691BP

PATIENT
  Sex: Female

DRUGS (23)
  1. PRADAXA [Suspect]
     Indication: ATRIAL FIBRILLATION
     Dosage: 300 MG
     Route: 048
     Dates: start: 20110118
  2. VERAPAMIL [Concomitant]
     Indication: HYPERTENSION
     Dosage: 240 MG
     Route: 048
  3. AVAPRO [Concomitant]
     Indication: HYPERTENSION
     Dosage: 300 MG
     Route: 048
  4. PRADAXA [Suspect]
     Indication: ANGIOPLASTY
  5. TEKTURNA [Concomitant]
     Indication: HYPERTENSION
     Dosage: 300 MG
     Route: 048
  6. VIT B-12 [Concomitant]
     Indication: PROPHYLAXIS
     Dosage: 1000 MG
     Route: 048
  7. LIPITOR [Concomitant]
     Indication: PROPHYLAXIS
     Dosage: 20 MG
     Route: 048
  8. COREG CR [Concomitant]
     Indication: HYPERTENSION
     Dosage: 80 MG
     Route: 048
  9. LOVAZA [Concomitant]
     Indication: PROPHYLAXIS
     Dosage: 2400 MG
     Route: 048
  10. LEVOTHYROXINE SODIUM [Concomitant]
     Indication: HYPOTHYROIDISM
     Dosage: 75 MCG
     Route: 048
     Dates: start: 20110103
  11. JANUMET [Concomitant]
     Indication: DIABETES MELLITUS
     Route: 048
  12. VIT D [Concomitant]
     Indication: PROPHYLAXIS
     Dosage: 7000 U
     Route: 048
  13. DIGOXIN [Concomitant]
     Indication: ATRIAL FIBRILLATION
     Dosage: 125 MCG
     Route: 048
  14. CINNAMON [Concomitant]
     Indication: BLOOD GLUCOSE ABNORMAL
     Dosage: 1000 MG
     Route: 048
  15. FAMOTIDINE [Concomitant]
     Indication: GASTROOESOPHAGEAL REFLUX DISEASE
     Dosage: 40 MG
     Route: 048
  16. DETROL [Concomitant]
     Indication: URINARY INCONTINENCE
     Dosage: 4 MG
     Route: 048
  17. MULTI-VITAMIN [Concomitant]
     Indication: PROPHYLAXIS
     Route: 048
  18. VIT B COMPLEX [Concomitant]
     Indication: PROPHYLAXIS
     Route: 048
  19. GLUCOSAMINE/CHONDROITIN [Concomitant]
     Indication: ARTHRITIS
     Route: 048
  20. AVALIDE [Concomitant]
  21. CALCIUM [Concomitant]
     Indication: PROPHYLAXIS
     Dosage: 1800 MG
     Route: 048
  22. VERAPAMIL [Concomitant]
     Indication: ATRIAL FIBRILLATION
  23. COREG CR [Concomitant]
     Indication: ATRIAL FIBRILLATION

REACTIONS (9)
  - DIZZINESS [None]
  - DECREASED APPETITE [None]
  - WEIGHT DECREASED [None]
  - BLOOD GLUCOSE INCREASED [None]
  - DEPRESSION [None]
  - URINE OUTPUT DECREASED [None]
  - FATIGUE [None]
  - DIARRHOEA [None]
  - BLOOD CREATININE INCREASED [None]
